FAERS Safety Report 5674309-8 (Version None)
Quarter: 2008Q2

REPORT INFORMATION
  Report Type: 
  Country: None (occurrence: None)
  Receive Date: 20080227
  Receipt Date: 20080227
  Transmission Date: 20081010
  Serious: Yes (Life-Threatening, Hospitalization)
  Sender: FDA-Public Use
  Company Number: 82007S1011578

PATIENT
  Age: 58 Year
  Sex: Female

DRUGS (5)
  1. PRAVASTATIN [Suspect]
     Dosage: 10 MG; ORAL
     Route: 048
     Dates: start: 20051206, end: 20070710
  2. LIPITOR [Suspect]
     Dosage: 10 MG;DAILY;ORAL
     Route: 048
     Dates: start: 20061012, end: 20070717
  3. CETIRIZINE HCL [Concomitant]
  4. MOMETASONE FUROATE [Concomitant]
  5. OMEPRAZOLE [Concomitant]

REACTIONS (2)
  - ABDOMINAL PAIN [None]
  - PANCREATITIS ACUTE [None]
